FAERS Safety Report 12831755 (Version 1)
Quarter: 2016Q4

REPORT INFORMATION
  Report Type: Report from Study
  Country: US (occurrence: US)
  Receive Date: 20161010
  Receipt Date: 20161010
  Transmission Date: 20170207
  Serious: Yes (Hospitalization, Other)
  Sender: FDA-Public Use
  Company Number: US-ROCHE-1275077

PATIENT
  Age: 70 Year
  Sex: Female
  Weight: 69.1 kg

DRUGS (30)
  1. BEVACIZUMAB [Suspect]
     Active Substance: BEVACIZUMAB
     Indication: FALLOPIAN TUBE CANCER
     Dosage: 15 MG/KG OVER 30-90 MINS (BEGINNING IN COURSE 2)  ON DAY 1 OF EACH 21 DAY CYCLE UNTILL DISEASE PROGR
     Route: 042
     Dates: start: 20130723
  2. BEVACIZUMAB [Suspect]
     Active Substance: BEVACIZUMAB
     Dosage: 15 MG/KG OVER 30-90 MINS (BEGINNING IN COURSE 2)  ON DAY 1 OF EACH 21 DAY CYCLE UNTILL DISEASE PROGR
     Route: 042
     Dates: start: 20131113
  3. BEVACIZUMAB [Suspect]
     Active Substance: BEVACIZUMAB
     Dosage: 15 MG/KG OVER 30-90 MINS (BEGINNING IN COURSE 2)  ON DAY 1 OF EACH 21 DAY CYCLE UNTILL DISEASE PROGR
     Route: 042
     Dates: start: 20140520
  4. VELIPARIB [Suspect]
     Active Substance: VELIPARIB
     Dosage: 250 MG ON DAYS 1-21 OF EACH 21 DAY CYCLE (FOR 6 CYCLES). TOTAL DOSE RECEIVED THE COURSE: 10500 MG?CO
     Route: 048
     Dates: start: 20130903
  5. PACLITAXEL. [Suspect]
     Active Substance: PACLITAXEL
     Indication: FALLOPIAN TUBE CANCER
     Dosage: 175 MG/M2 OVER 3 HOURS ON DAY 1 OF EACH 21 DAY CYCLE FOR 6 CYCLES. ?COURSE 1
     Route: 042
     Dates: start: 20130702
  6. BEVACIZUMAB [Suspect]
     Active Substance: BEVACIZUMAB
     Dosage: 15 MG/KG OVER 30-90 MINS (BEGINNING IN COURSE 2)  ON DAY 1 OF EACH 21 DAY CYCLE UNTILL DISEASE PROGR
     Route: 042
     Dates: start: 20131016
  7. BEVACIZUMAB [Suspect]
     Active Substance: BEVACIZUMAB
     Dosage: 15 MG/KG OVER 30-90 MINS (BEGINNING IN COURSE 2)  ON DAY 1 OF EACH 21 DAY CYCLE UNTILL DISEASE PROGR
     Route: 042
     Dates: start: 20140218
  8. BEVACIZUMAB [Suspect]
     Active Substance: BEVACIZUMAB
     Dosage: 15 MG/KG OVER 30-90 MINS (BEGINNING IN COURSE 2)  ON DAY 1 OF EACH 21 DAY CYCLE UNTILL DISEASE PROGR
     Route: 042
     Dates: start: 20140429
  9. BEVACIZUMAB [Suspect]
     Active Substance: BEVACIZUMAB
     Dosage: 15 MG/KG OVER 30-90 MINS (BEGINNING IN COURSE 2)  ON DAY 1 OF EACH 21 DAY CYCLE UNTILL DISEASE PROGR
     Route: 042
     Dates: start: 20141022
  10. VELIPARIB [Suspect]
     Active Substance: VELIPARIB
     Dosage: 250 MG ON DAYS 1-21 OF EACH 21 DAY CYCLE (FOR 6 CYCLES). TOTAL DOSE RECEIVED THE COURSE: 10000 MG?CO
     Route: 048
     Dates: start: 20130813
  11. BEVACIZUMAB [Suspect]
     Active Substance: BEVACIZUMAB
     Dosage: 15 MG/KG OVER 30-90 MINS (BEGINNING IN COURSE 2)  ON DAY 1 OF EACH 21 DAY CYCLE UNTILL DISEASE PROGR
     Route: 042
     Dates: start: 20140311
  12. BEVACIZUMAB [Suspect]
     Active Substance: BEVACIZUMAB
     Dosage: 15 MG/KG OVER 30-90 MINS (BEGINNING IN COURSE 2)  ON DAY 1 OF EACH 21 DAY CYCLE UNTILL DISEASE PROGR
     Route: 042
     Dates: start: 20140610
  13. BEVACIZUMAB [Suspect]
     Active Substance: BEVACIZUMAB
     Dosage: 15 MG/KG OVER 30-90 MINS (BEGINNING IN COURSE 2)  ON DAY 1 OF EACH 21 DAY CYCLE UNTILL DISEASE PROGR
     Route: 042
     Dates: start: 20130813
  14. BEVACIZUMAB [Suspect]
     Active Substance: BEVACIZUMAB
     Dosage: 15 MG/KG OVER 30-90 MINS (BEGINNING IN COURSE 2)  ON DAY 1 OF EACH 21 DAY CYCLE UNTILL DISEASE PROGR
     Route: 042
     Dates: start: 20140121
  15. BEVACIZUMAB [Suspect]
     Active Substance: BEVACIZUMAB
     Dosage: 15 MG/KG OVER 30-90 MINS (BEGINNING IN COURSE 2)  ON DAY 1 OF EACH 21 DAY CYCLE UNTILL DISEASE PROGR
     Route: 042
     Dates: start: 20140813
  16. PACLITAXEL. [Suspect]
     Active Substance: PACLITAXEL
     Dosage: 175 MG/M2 OVER 3 HOURS ON DAY 1 OF EACH 21 DAY CYCLE FOR 6 CYCLES. TOTAL DOSE RECIEVED IN COURSE 3:
     Route: 042
     Dates: start: 20130813
  17. BEVACIZUMAB [Suspect]
     Active Substance: BEVACIZUMAB
     Dosage: 15 MG/KG OVER 30-90 MINS (BEGINNING IN COURSE 2)  ON DAY 1 OF EACH 21 DAY CYCLE UNTILL DISEASE PROGR
     Route: 042
     Dates: start: 20131210
  18. VELIPARIB [Suspect]
     Active Substance: VELIPARIB
     Dosage: 250 MG ON DAYS 1-21 OF EACH 21 DAY CYCLE (FOR 6 CYCLES). TOTAL DOSE RECEIVED THE COURSE: 10000 MG?CO
     Route: 048
     Dates: start: 20130723
  19. BEVACIZUMAB [Suspect]
     Active Substance: BEVACIZUMAB
     Dosage: 15 MG/KG OVER 30-90 MINS (BEGINNING IN COURSE 2)  ON DAY 1 OF EACH 21 DAY CYCLE UNTILL DISEASE PROGR
     Route: 042
     Dates: start: 20140722
  20. BEVACIZUMAB [Suspect]
     Active Substance: BEVACIZUMAB
     Dosage: 15 MG/KG OVER 30-90 MINS (BEGINNING IN COURSE 2)  ON DAY 1 OF EACH 21 DAY CYCLE UNTILL DISEASE PROGR
     Route: 042
     Dates: start: 20140924
  21. VELIPARIB [Suspect]
     Active Substance: VELIPARIB
     Dosage: 250 MG ON DAYS 1-21 OF EACH 21 DAY CYCLE (FOR 6 CYCLES). TOTAL DOSE RECEIVED THE COURSE: 10500 MG?CO
     Route: 048
     Dates: start: 20131016
  22. BEVACIZUMAB [Suspect]
     Active Substance: BEVACIZUMAB
     Dosage: 15 MG/KG OVER 30-90 MINS (BEGINNING IN COURSE 2)  ON DAY 1 OF EACH 21 DAY CYCLE UNTILL DISEASE PROGR
     Route: 042
     Dates: start: 20130903
  23. BEVACIZUMAB [Suspect]
     Active Substance: BEVACIZUMAB
     Dosage: 15 MG/KG OVER 30-90 MINS (BEGINNING IN COURSE 2)  ON DAY 1 OF EACH 21 DAY CYCLE UNTILL DISEASE PROGR
     Route: 042
     Dates: start: 20130924
  24. VELIPARIB [Suspect]
     Active Substance: VELIPARIB
     Indication: FALLOPIAN TUBE CANCER
     Dosage: 250 MG ON DAYS 1-21 OF EACH 21 DAY CYCLE (FOR 6 CYCLES). TOTAL DOSE RECEIVED THE COURSE: 10500 MG?CO
     Route: 048
     Dates: start: 20130702
  25. BEVACIZUMAB [Suspect]
     Active Substance: BEVACIZUMAB
     Dosage: 15 MG/KG OVER 30-90 MINS (BEGINNING IN COURSE 2)  ON DAY 1 OF EACH 21 DAY CYCLE UNTILL DISEASE PROGR
     Route: 042
     Dates: start: 20131231
  26. BEVACIZUMAB [Suspect]
     Active Substance: BEVACIZUMAB
     Dosage: 15 MG/KG OVER 30-90 MINS (BEGINNING IN COURSE 2)  ON DAY 1 OF EACH 21 DAY CYCLE UNTILL DISEASE PROGR
     Route: 042
     Dates: start: 20140701
  27. BEVACIZUMAB [Suspect]
     Active Substance: BEVACIZUMAB
     Dosage: 15 MG/KG OVER 30-90 MINS (BEGINNING IN COURSE 2)  ON DAY 1 OF EACH 21 DAY CYCLE UNTILL DISEASE PROGR
     Route: 042
     Dates: start: 20140903
  28. VELIPARIB [Suspect]
     Active Substance: VELIPARIB
     Dosage: 250 MG ON DAYS 1-21 OF EACH 21 DAY CYCLE (FOR 6 CYCLES). TOTAL DOSE RECEIVED THE COURSE: 10500 MG?CO
     Route: 048
     Dates: start: 20130924
  29. CARBOPLATIN. [Suspect]
     Active Substance: CARBOPLATIN
     Indication: FALLOPIAN TUBE CANCER
     Dosage: 6 AUC OVER 30 MINS ON DAY 1 OF EACH 21 DAY CYCLE FOR 6 CYCLES.?COURSE 1
     Route: 042
     Dates: start: 20130702
  30. CARBOPLATIN. [Suspect]
     Active Substance: CARBOPLATIN
     Dosage: 6 AUC OVER 30 MINS ON DAY 1 OF EACH 21 DAY CYCLE FOR 6 CYCLES. TOTAL DOSE RECIEVED IN COURSE 3: 584
     Route: 042
     Dates: start: 20130813

REACTIONS (9)
  - Hydronephrosis [Not Recovered/Not Resolved]
  - White blood cell count decreased [Unknown]
  - Anaemia [Unknown]
  - Hyponatraemia [Unknown]
  - Back pain [Not Recovered/Not Resolved]
  - Urinary tract obstruction [Unknown]
  - Platelet count decreased [Unknown]
  - Neutrophil count decreased [Unknown]
  - Hypokalaemia [Unknown]

NARRATIVE: CASE EVENT DATE: 20130827
